FAERS Safety Report 9167641 (Version 1)
Quarter: 2013Q1

REPORT INFORMATION
  Report Type: Spontaneous
  Country: IT (occurrence: IT)
  Receive Date: 20130318
  Receipt Date: 20130318
  Transmission Date: 20140127
  Serious: Yes (Disabling)
  Sender: FDA-Public Use
  Company Number: PHHY2013IT025707

PATIENT
  Age: 78 Year
  Sex: Male

DRUGS (6)
  1. ZOMETA [Suspect]
     Indication: PROSTATE CANCER METASTATIC
     Route: 042
     Dates: start: 20110601, end: 20111001
  2. TRIPTORELIN [Concomitant]
     Dates: start: 20110419
  3. GLUCOFERRO [Concomitant]
  4. TOTALIP [Concomitant]
  5. BICALUTAMIDE [Concomitant]
     Dates: start: 20110419, end: 20121206
  6. NEOTIGASON [Concomitant]

REACTIONS (1)
  - Osteonecrosis of jaw [Recovered/Resolved]
